FAERS Safety Report 8630380 (Version 3)
Quarter: 2013Q4

REPORT INFORMATION
  Report Type: Spontaneous
  Country: US (occurrence: US)
  Receive Date: 20120622
  Receipt Date: 20131204
  Transmission Date: 20140711
  Serious: No
  Sender: FDA-Public Use
  Company Number: US-ASTRAZENECA-2012SE34469

PATIENT
  Age: 65 Year
  Sex: Female
  Weight: 67.1 kg

DRUGS (21)
  1. NEXIUM [Suspect]
     Indication: GASTROOESOPHAGEAL REFLUX DISEASE
     Dosage: ONCE A DAY
     Route: 048
  2. NEXIUM [Suspect]
     Indication: GASTROOESOPHAGEAL REFLUX DISEASE
     Route: 048
     Dates: start: 20021024
  3. VITAMIN D [Concomitant]
  4. NAPROXEN SODIUM [Concomitant]
     Dates: start: 20030612
  5. LIPITOR [Concomitant]
     Dates: start: 20010910
  6. HYDROCODONE W/APAP [Concomitant]
     Dates: start: 20051126
  7. CEPHALEXIN [Concomitant]
     Dates: start: 20020828
  8. DICYCLOMINE [Concomitant]
     Dates: start: 20060611
  9. ACTONEL [Concomitant]
     Dates: start: 20060702
  10. PROMETHAZINE [Concomitant]
     Dates: start: 20060801
  11. METHYLPREDNISOLONE [Concomitant]
     Dates: start: 20070406
  12. METRONIDAZOLE [Concomitant]
     Dates: start: 20070614
  13. FLUCONAZOLE [Concomitant]
     Dates: start: 20091105
  14. DEXILANT [Concomitant]
     Dates: start: 20100512
  15. SUCRALFATE [Concomitant]
     Dates: start: 20101121
  16. METOCLOPRAMIDE [Concomitant]
     Dates: start: 20110428
  17. SULFAMETHOXAZOLE [Concomitant]
     Dates: start: 20110828
  18. MELOXICAM [Concomitant]
     Dates: start: 20130320
  19. SIMVASTATIN [Concomitant]
     Dates: start: 20130320
  20. CEFDINIR [Concomitant]
     Dates: start: 20130405
  21. TRAMADOL HCL [Concomitant]
     Dates: start: 20060131

REACTIONS (3)
  - Osteoporosis [Unknown]
  - Forearm fracture [Unknown]
  - Osteopenia [Unknown]
